FAERS Safety Report 16087369 (Version 3)
Quarter: 2021Q1

REPORT INFORMATION
  Report Type: Other
  Country: FR (occurrence: FR)
  Receive Date: 20190319
  Receipt Date: 20210219
  Transmission Date: 20210419
  Serious: Yes (Congenital Anomaly, Other)
  Sender: FDA-Public Use
  Company Number: US-MACLEODS PHARMACEUTICALS US LTD-MAC2019020502

PATIENT

DRUGS (5)
  1. NEVIRAPINE. [Suspect]
     Active Substance: NEVIRAPINE
     Indication: PRODUCT USED FOR UNKNOWN INDICATION
     Dosage: UNK, 1 COURCE, STOP DATE: FEB?2017
     Route: 064
  2. REYATAZ [Suspect]
     Active Substance: ATAZANAVIR SULFATE
     Indication: PRODUCT USED FOR UNKNOWN INDICATION
     Dosage: UNK, 1 COURCE, DURING 1 TRIMESTER
     Route: 064
     Dates: start: 20160501, end: 20170129
  3. EPZICOM [Suspect]
     Active Substance: ABACAVIR SULFATE\LAMIVUDINE
     Indication: PRODUCT USED FOR UNKNOWN INDICATION
     Dosage: UNK, 1 COURCE, DURING 1 TRIMESTER
     Route: 064
     Dates: start: 20160501, end: 20170129
  4. PREZISTA [Suspect]
     Active Substance: DARUNAVIR ETHANOLATE
     Indication: PRODUCT USED FOR UNKNOWN INDICATION
     Dosage: UNK, 1 COURCE, DURING 1 TRIMESTER
     Route: 064
     Dates: start: 20160501, end: 20170129
  5. NORVIR [Suspect]
     Active Substance: RITONAVIR
     Indication: PRODUCT USED FOR UNKNOWN INDICATION
     Dosage: 1 DOSAGE FORM, 1 COURCE, DURING 1 TRIMESTER
     Route: 064
     Dates: start: 20160501, end: 20170129

REACTIONS (9)
  - Low set ears [Unknown]
  - Ichthyosis [Unknown]
  - Left ventricular dilatation [Unknown]
  - Breast disorder [Unknown]
  - Congenital naevus [Unknown]
  - Foetal exposure during pregnancy [Unknown]
  - Eosinophilia [Unknown]
  - Foetal growth restriction [Unknown]
  - Acoustic stimulation tests abnormal [Unknown]
